FAERS Safety Report 15158896 (Version 1)
Quarter: 2018Q3

REPORT INFORMATION
  Report Type: Spontaneous
  Country: US (occurrence: US)
  Receive Date: 20180620
  Receipt Date: 20180620
  Transmission Date: 20181010
  Serious: Yes (Death)
  Sender: FDA-Public Use
  Company Number: None

PATIENT
  Age: 57 Year
  Sex: Male

DRUGS (19)
  1. VITAMIN D3 [Concomitant]
     Active Substance: CHOLECALCIFEROL
  2. LORAZEPAM. [Concomitant]
     Active Substance: LORAZEPAM
  3. TRUBIOTICS [Concomitant]
     Active Substance: PROBIOTICS NOS
  4. CLOTRIMAZOLE TRO [Concomitant]
  5. PAROXETINE TAB [Concomitant]
  6. MULTIVI/FL [Concomitant]
  7. MEGESTROL AC [Concomitant]
  8. COQ10 [Concomitant]
     Active Substance: UBIDECARENONE
  9. ASPIRIN. [Concomitant]
     Active Substance: ASPIRIN
  10. TURMERIC [Concomitant]
     Active Substance: HERBALS\TURMERIC
  11. NO DRUG NAME [Concomitant]
  12. VITAMIN E [Concomitant]
     Active Substance: .ALPHA.-TOCOPHEROL
  13. SUTENT [Suspect]
     Active Substance: SUNITINIB MALATE
     Indication: RENAL CANCER
     Dosage: FOR 14 DAYS ON AND OFF FOR 7 DAYS
     Route: 048
     Dates: start: 20170902, end: 201712
  14. PROCHLORPER TAB [Concomitant]
  15. OXYCONTIN TAB [Concomitant]
  16. VITAMIN C [Concomitant]
     Active Substance: ASCORBIC ACID
  17. DULCOLAX NOS [Concomitant]
     Active Substance: BISACODYL OR DOCUSATE SODIUM
  18. DILTIAZEM. [Suspect]
     Active Substance: DILTIAZEM
  19. DEXAMETHASON [Concomitant]
     Active Substance: DEXAMETHASONE

REACTIONS (1)
  - Death [None]

NARRATIVE: CASE EVENT DATE: 20171207
